FAERS Safety Report 21983454 (Version 5)
Quarter: 2024Q1

REPORT INFORMATION
  Report Type: Report from Study
  Country: PE (occurrence: PE)
  Receive Date: 20230213
  Receipt Date: 20240228
  Transmission Date: 20240409
  Serious: Yes (Other)
  Sender: FDA-Public Use
  Company Number: PE-002147023-NVSC2022PE300244

PATIENT
  Age: 89 Year
  Sex: Female

DRUGS (2)
  1. KISQALI [Suspect]
     Active Substance: RIBOCICLIB
     Indication: Breast cancer metastatic
     Dosage: 600 MG, QD
     Route: 048
     Dates: start: 20221201
  2. KISQALI [Suspect]
     Active Substance: RIBOCICLIB
     Dosage: 400 MG, QD
     Route: 048
     Dates: start: 20221201

REACTIONS (8)
  - Neutropenia [Unknown]
  - Abdominal discomfort [Recovering/Resolving]
  - Dyspepsia [Recovering/Resolving]
  - Fatigue [Unknown]
  - Depressed mood [Unknown]
  - Full blood count decreased [Unknown]
  - Inappropriate schedule of product administration [Unknown]
  - Neoplasm [Unknown]

NARRATIVE: CASE EVENT DATE: 20221201
